FAERS Safety Report 21775380 (Version 1)
Quarter: 2022Q4

REPORT INFORMATION
  Report Type: Spontaneous
  Country: None (occurrence: US)
  Receive Date: 20221225
  Receipt Date: 20221225
  Transmission Date: 20230112
  Serious: Yes (Other)
  Sender: FDA-Public Use
  Company Number: US-P+L Developments of Newyork Corporation-2136168

PATIENT
  Age: 65 Year
  Sex: Female

DRUGS (1)
  1. LORATADINE [Suspect]
     Active Substance: LORATADINE
     Indication: Cold urticaria
     Route: 048
     Dates: end: 20221214

REACTIONS (3)
  - Loss of consciousness [Unknown]
  - Somnolence [Unknown]
  - Wrong technique in product usage process [Unknown]
